FAERS Safety Report 4735835-9 (Version None)
Quarter: 2005Q3

REPORT INFORMATION
  Report Type: 
  Country: None (occurrence: None)
  Receive Date: 20050721
  Receipt Date: 20050525
  Transmission Date: 20060218
  Serious: No
  Sender: FDA-Public Use
  Company Number: 2005SP001029

PATIENT
  Age: 48 Year
  Sex: Female
  Weight: 54.8852 kg

DRUGS (1)
  1. LUNESTA [Suspect]
     Dosage: 2 MG;1X;ORAL
     Route: 048
     Dates: start: 20050522, end: 20050522

REACTIONS (2)
  - DRUG INEFFECTIVE [None]
  - MIDDLE INSOMNIA [None]
